FAERS Safety Report 5323665-9 (Version None)
Quarter: 2007Q2

REPORT INFORMATION
  Report Type: 
  Country: None (occurrence: None)
  Receive Date: 20070514
  Receipt Date: 20070503
  Transmission Date: 20071010
  Serious: Yes (Other)
  Sender: FDA-Public Use
  Company Number: HQWYE979204MAY07

PATIENT

DRUGS (1)
  1. PROTONIX [Suspect]
     Dosage: UNKNOWN
     Route: 048

REACTIONS (1)
  - HYPERGLYCAEMIA [None]
